FAERS Safety Report 12579846 (Version 1)
Quarter: 2016Q3

REPORT INFORMATION
  Report Type: Spontaneous
  Country: GB (occurrence: GB)
  Receive Date: 20160721
  Receipt Date: 20160721
  Transmission Date: 20161109
  Serious: Yes (Hospitalization, Other)
  Sender: FDA-Public Use
  Company Number: GB-TEVA-676888ACC

PATIENT
  Age: 83 Year
  Sex: Male
  Weight: 71 kg

DRUGS (11)
  1. NAPROXEN. [Suspect]
     Active Substance: NAPROXEN
     Dosage: 1000 MILLIGRAM DAILY; 2 TABLETS
     Route: 048
     Dates: start: 20160330, end: 20160401
  2. WARFARIN [Suspect]
     Active Substance: WARFARIN
     Indication: ATRIAL FIBRILLATION
     Dosage: AS PER INTERNATIONAL NORMALISED RATIO.
     Route: 048
  3. FLUTICASONE [Concomitant]
     Active Substance: FLUTICASONE\FLUTICASONE PROPIONATE
     Route: 055
  4. DIGOXIN. [Concomitant]
     Active Substance: DIGOXIN
     Dosage: 125 MICROGRAM DAILY;
  5. FUROSEMIDE. [Concomitant]
     Active Substance: FUROSEMIDE
     Dosage: 40 MILLIGRAM DAILY;
  6. VIAZEM XL [Concomitant]
     Active Substance: DILTIAZEM HYDROCHLORIDE
     Dosage: 6 MILLIGRAM DAILY;
  7. SALMETEROL [Concomitant]
     Active Substance: SALMETEROL
     Route: 055
  8. INDOMETACIN [Suspect]
     Active Substance: INDOMETHACIN
     Dosage: 150 MILLIGRAM DAILY; X 6 CAPSULES
     Route: 048
     Dates: start: 20160324, end: 20160326
  9. VITAMIN B12 [Concomitant]
     Active Substance: CYANOCOBALAMIN
  10. RAMIPRIL. [Concomitant]
     Active Substance: RAMIPRIL
     Dosage: 2.5 MILLIGRAM DAILY;
  11. SIMVASTATIN. [Concomitant]
     Active Substance: SIMVASTATIN
     Dosage: 10 MILLIGRAM DAILY;

REACTIONS (3)
  - Contraindicated product administered [Unknown]
  - Pain in extremity [Unknown]
  - Haemarthrosis [Unknown]

NARRATIVE: CASE EVENT DATE: 2016
